APPROVED DRUG PRODUCT: FENOFIBRATE
Active Ingredient: FENOFIBRATE
Strength: 160MG
Dosage Form/Route: TABLET;ORAL
Application: A207803 | Product #002 | TE Code: AB
Applicant: BOSTAL LLC
Approved: Dec 19, 2017 | RLD: No | RS: No | Type: RX